FAERS Safety Report 9824940 (Version 3)
Quarter: 2014Q1

REPORT INFORMATION
  Report Type: Report from Study
  Country: CA (occurrence: CA)
  Receive Date: 20140117
  Receipt Date: 20140213
  Transmission Date: 20141002
  Serious: Yes (Other)
  Sender: FDA-Public Use
  Company Number: CA-JNJFOC-20140105788

PATIENT
  Age: 47 Year
  Sex: Male
  Weight: 77 kg

DRUGS (9)
  1. REMICADE [Suspect]
     Indication: CROHN^S DISEASE
     Route: 042
     Dates: start: 20120605
  2. AMOXICLAV [Concomitant]
     Route: 065
  3. OMEPRAZOLE [Concomitant]
     Route: 065
  4. BUSCOPAN [Concomitant]
     Route: 065
  5. TORADOL [Concomitant]
     Route: 065
  6. FLOMAX [Concomitant]
     Route: 065
  7. SYMBICORT [Concomitant]
     Route: 065
  8. VALACYCLOVIR [Concomitant]
     Route: 065
  9. CHOLESTYRAMINE [Concomitant]
     Dosage: 3-6 P KG
     Route: 065

REACTIONS (2)
  - Nephrolithiasis [Not Recovered/Not Resolved]
  - Herpes zoster [Recovering/Resolving]
